FAERS Safety Report 6366234-4 (Version None)
Quarter: 2009Q3

REPORT INFORMATION
  Report Type: 
  Country: None (occurrence: None)
  Receive Date: 20090921
  Receipt Date: 20090914
  Transmission Date: 20100115
  Serious: No
  Sender: FDA-Public Use
  Company Number: US-JNJFOC-20090904804

PATIENT
  Sex: Male
  Weight: 77.11 kg

DRUGS (4)
  1. DURAGESIC-100 [Suspect]
     Indication: BACK PAIN
     Route: 062
  2. ADDERALL 10 [Concomitant]
     Indication: HYPERVIGILANCE
     Route: 048
  3. SEROQUEL [Concomitant]
     Indication: SLEEP DISORDER
     Dosage: 1 AT PM
  4. TRAZODONE [Concomitant]
     Indication: SLEEP DISORDER

REACTIONS (7)
  - APPLICATION SITE EROSION [None]
  - APPLICATION SITE IRRITATION [None]
  - APPLICATION SITE PRURITUS [None]
  - PRODUCT QUALITY ISSUE [None]
  - SKIN EXFOLIATION [None]
  - WITHDRAWAL SYNDROME [None]
  - WRONG TECHNIQUE IN DRUG USAGE PROCESS [None]
